FAERS Safety Report 8597781-2 (Version None)
Quarter: 2012Q3

REPORT INFORMATION
  Report Type: 
  Country: None (occurrence: None)
  Receive Date: 20120816
  Receipt Date: 20120810
  Transmission Date: 20120928
  Serious: Yes (Death, Hospitalization, Other)
  Sender: FDA-Public Use
  Company Number: PHHY2012US056329

PATIENT
  Sex: Male
  Weight: 72 kg

DRUGS (27)
  1. DILAUDID [Concomitant]
     Dosage: 3 MG, Q3H
     Route: 042
     Dates: start: 20100923, end: 20101004
  2. HEPARIN [Concomitant]
     Indication: THROMBOSIS PROPHYLAXIS
     Dosage: 10000 IU, BID
     Route: 058
     Dates: start: 20090303, end: 20110628
  3. DILAUDID [Concomitant]
     Dosage: 4 MG, QD
     Route: 048
     Dates: end: 20110628
  4. KLONOPIN [Concomitant]
     Indication: INSOMNIA
     Dosage: 0.5 MG, QD
     Route: 048
     Dates: start: 20040224, end: 20101118
  5. KADIAN [Concomitant]
     Dosage: 50 MG, BID
     Route: 048
     Dates: end: 20110901
  6. PHENERGAN HCL [Concomitant]
     Dosage: 1 DF, PRN
     Route: 048
     Dates: end: 20111103
  7. FLEXERIL [Concomitant]
     Indication: BACK PAIN
     Dosage: 10 MG, TID
     Dates: start: 20110220, end: 20111103
  8. DILAUDID [Concomitant]
     Dosage: 2 MG, Q3H
     Route: 042
     Dates: start: 20110324, end: 20110407
  9. DILAUDID [Concomitant]
     Dosage: 3 MG, Q3H
     Route: 042
     Dates: start: 20110414, end: 20110426
  10. DILAUDID [Concomitant]
     Dosage: 2 MG, Q3H
     Route: 042
     Dates: start: 20110517, end: 20110529
  11. FOLIC ACID [Concomitant]
     Indication: ANAEMIA
     Dosage: 1 MG, QD
     Route: 048
     Dates: end: 20101118
  12. PHENERGAN HCL [Concomitant]
     Indication: PROPHYLAXIS OF NAUSEA AND VOMITING
     Dosage: 1 DF, PRN
     Route: 048
     Dates: start: 20090311, end: 20110628
  13. RESTORIL [Concomitant]
     Indication: INSOMNIA
     Dosage: 30 MG, QD
     Route: 048
     Dates: start: 20090101, end: 20110831
  14. DILAUDID [Concomitant]
     Indication: PAIN
     Dosage: 4 MG, QD
     Route: 048
     Dates: start: 20050101
  15. PHENERGAN HCL [Concomitant]
     Dosage: 1 DF, UNK
     Route: 048
     Dates: end: 20110901
  16. HEPARIN [Concomitant]
     Dosage: 10000 IU, BID
     Dates: end: 20110831
  17. EXJADE [Suspect]
     Indication: IRON OVERLOAD
     Dosage: 21 MG/KG (1500 MG, QD)
     Route: 048
     Dates: start: 20070721
  18. KADIAN [Concomitant]
     Dosage: 50 MG, BID
     Route: 048
     Dates: end: 20111103
  19. HEPARIN [Concomitant]
     Dosage: 10000 U, BID
     Route: 058
     Dates: end: 20111103
  20. DILAUDID [Concomitant]
     Dosage: 3 MG, Q3H
     Route: 042
     Dates: start: 20110121, end: 20110202
  21. DILAUDID [Concomitant]
     Dosage: 3 MG, Q3H
     Route: 042
     Dates: start: 20101230, end: 20110106
  22. DILAUDID [Concomitant]
     Dosage: 10 MG, Q3H
     Route: 042
     Dates: start: 20110628, end: 20110705
  23. DILAUDID [Concomitant]
     Dosage: 4 MG, QD
     Dates: end: 20110901
  24. DILAUDID [Concomitant]
     Dosage: 3 MG, Q3H
     Route: 042
  25. KADIAN [Concomitant]
     Indication: PAIN
     Dosage: 50 MG, BID
     Route: 048
     Dates: start: 20090707, end: 20110628
  26. DILAUDID [Concomitant]
     Dosage: 3 MG, Q3H
     Route: 042
     Dates: start: 20101214, end: 20101221
  27. DILAUDID [Concomitant]
     Dosage: 4 MG, QD
     Route: 048
     Dates: end: 20111103

REACTIONS (35)
  - PAINFUL RESPIRATION [None]
  - PYREXIA [None]
  - CLOSTRIDIUM DIFFICILE COLITIS [None]
  - FREQUENT BOWEL MOVEMENTS [None]
  - RASH [None]
  - ACUTE CHEST SYNDROME [None]
  - PNEUMONIA [None]
  - DIARRHOEA [None]
  - FEMUR FRACTURE [None]
  - PULMONARY CONGESTION [None]
  - SICKLE CELL ANAEMIA WITH CRISIS [None]
  - DYSPNOEA [None]
  - EJECTION FRACTION DECREASED [None]
  - ARTERIAL THROMBOSIS LIMB [None]
  - MUSCLE OEDEMA [None]
  - HAEMOGLOBIN DECREASED [None]
  - ABDOMINAL WALL HAEMATOMA [None]
  - ATRIOVENTRICULAR BLOCK COMPLETE [None]
  - TIBIA FRACTURE [None]
  - BURSITIS [None]
  - BACK PAIN [None]
  - PULMONARY HYPERTENSION [None]
  - OXYGEN SATURATION DECREASED [None]
  - STAPHYLOCOCCAL BACTERAEMIA [None]
  - CHEST PAIN [None]
  - SINUS TACHYCARDIA [None]
  - DILATATION VENTRICULAR [None]
  - SPINAL DEFORMITY [None]
  - BACK INJURY [None]
  - PALPITATIONS [None]
  - THORACIC VERTEBRAL FRACTURE [None]
  - ARTHRALGIA [None]
  - ACNE [None]
  - OSTEOPOROSIS [None]
  - PAIN IN EXTREMITY [None]
